FAERS Safety Report 16093794 (Version 3)
Quarter: 2019Q4

REPORT INFORMATION
  Report Type: Spontaneous
  Country: PE (occurrence: PE)
  Receive Date: 20190320
  Receipt Date: 20191115
  Transmission Date: 20200122
  Serious: Yes (Other)
  Sender: FDA-Public Use
  Company Number: PE-SA-2019SA073054

PATIENT
  Age: 21 Year
  Sex: Female
  Weight: 84.5 kg

DRUGS (8)
  1. PREDNISONE. [Concomitant]
     Active Substance: PREDNISONE
     Indication: RHEUMATOID ARTHRITIS
     Dosage: UNK UNK, QD
     Route: 048
     Dates: start: 20190113
  2. FOLIC ACID. [Concomitant]
     Active Substance: FOLIC ACID
     Indication: RHEUMATOID ARTHRITIS
     Dosage: UNK UNK, QD
     Route: 048
     Dates: start: 2000
  3. ARAVA [Suspect]
     Active Substance: LEFLUNOMIDE
     Indication: RHEUMATOID ARTHRITIS
     Dosage: 20 MG, QD
     Route: 048
     Dates: start: 20180820, end: 20180920
  4. NAPROXEN. [Concomitant]
     Active Substance: NAPROXEN
     Indication: RHEUMATOID ARTHRITIS
     Dosage: UNK UNK, QD
     Route: 048
     Dates: start: 20190113, end: 20190217
  5. KETOPROFEN. [Concomitant]
     Active Substance: KETOPROFEN
     Indication: RHEUMATOID ARTHRITIS
     Dosage: UNK UNK, QD
     Route: 048
     Dates: start: 20190113, end: 20190217
  6. METHOTREXATE. [Concomitant]
     Active Substance: METHOTREXATE
     Indication: RHEUMATOID ARTHRITIS
     Dosage: UNK (4 UNITS ON SATURDAYS AND 3 UNITS ON SUNDAYS)
     Route: 048
     Dates: start: 20190113, end: 20190217
  7. ARAVA [Suspect]
     Active Substance: LEFLUNOMIDE
     Dosage: 20 MG, QD
     Route: 048
     Dates: start: 20181220, end: 20190120
  8. CALCIUM [Concomitant]
     Active Substance: CALCIUM

REACTIONS (11)
  - Exposure during pregnancy [Unknown]
  - Headache [Unknown]
  - Uterine malposition [Unknown]
  - Uterine haemorrhage [Unknown]
  - Polycystic ovaries [Unknown]
  - Foetal death [Unknown]
  - Vulvovaginal pain [Unknown]
  - Vaginal haemorrhage [Unknown]
  - Abortion [Unknown]
  - Thrombosis [Unknown]
  - Menstrual disorder [Unknown]

NARRATIVE: CASE EVENT DATE: 201904
